FAERS Safety Report 6813273-2 (Version None)
Quarter: 2010Q3

REPORT INFORMATION
  Report Type: 
  Country: None (occurrence: None)
  Receive Date: 20100701
  Receipt Date: 20100622
  Transmission Date: 20110219
  Serious: Yes (Other)
  Sender: FDA-Public Use
  Company Number: US-PFIZER INC-2010078624

PATIENT
  Sex: Female

DRUGS (4)
  1. ZOLOFT [Suspect]
     Indication: ANXIETY
     Dosage: 100 MG, 1X/DAY
  2. ZOLOFT [Suspect]
     Indication: DEPRESSION
     Dosage: 50 MG, UNK
  3. TRAZODONE [Concomitant]
     Indication: BIPOLAR DISORDER
     Dosage: UNK
  4. LITHIUM [Concomitant]
     Indication: BIPOLAR DISORDER
     Dosage: UNK

REACTIONS (11)
  - AGGRESSION [None]
  - AGITATION [None]
  - BRUXISM [None]
  - CHEST PAIN [None]
  - FEELING ABNORMAL [None]
  - HOSTILITY [None]
  - LOOSE TOOTH [None]
  - PANIC REACTION [None]
  - SELF INJURIOUS BEHAVIOUR [None]
  - SUICIDAL IDEATION [None]
  - WITHDRAWAL SYNDROME [None]
